FAERS Safety Report 8083862-9 (Version None)
Quarter: 2012Q1

REPORT INFORMATION
  Report Type: 
  Country: None (occurrence: None)
  Receive Date: 20120128
  Receipt Date: 20110207
  Transmission Date: 20120608
  Serious: No
  Sender: FDA-Public Use
  Company Number: US-ABBOTT-11P-163-0703152-00

PATIENT
  Sex: Female
  Weight: 52.664 kg

DRUGS (3)
  1. HUMIRA [Suspect]
     Dates: start: 20110204
  2. LEVOTHYROXINE SODIUM [Concomitant]
     Indication: HYPOTHYROIDISM
     Dates: start: 19990101
  3. HUMIRA [Suspect]
     Indication: CROHN'S DISEASE
     Dates: start: 20090101, end: 20110204

REACTIONS (10)
  - VISION BLURRED [None]
  - THIRST [None]
  - DIARRHOEA [None]
  - PERIPHERAL COLDNESS [None]
  - HOT FLUSH [None]
  - CONFUSIONAL STATE [None]
  - DRUG INEFFECTIVE [None]
  - ABDOMINAL PAIN [None]
  - DYSPNOEA [None]
  - DIZZINESS [None]
